FAERS Safety Report 9843373 (Version 1)
Quarter: 2013Q4

REPORT INFORMATION
  Report Type: Spontaneous
  Country: US (occurrence: None)
  Receive Date: 20131223
  Receipt Date: 20131223
  Transmission Date: 20140711
  Serious: No
  Sender: FDA-Public Use
  Company Number: 219700LEO

PATIENT
  Age: 57 Year
  Sex: Female

DRUGS (3)
  1. PICATO (0.05 %, GEL) [Suspect]
     Indication: ACTINIC KERATOSIS
     Dosage: TOPICAL
     Dates: start: 20121116, end: 20121117
  2. SYNTHROID (LEVOTHYROXINE SODIUM) [Concomitant]
  3. PREDNISONE (PREDNISONE) [Concomitant]

REACTIONS (2)
  - Erythema [None]
  - Drug administered at inappropriate site [None]
